FAERS Safety Report 8144005-6 (Version None)
Quarter: 2012Q1

REPORT INFORMATION
  Report Type: 
  Country: None (occurrence: None)
  Receive Date: 20120217
  Receipt Date: 20120217
  Transmission Date: 20120608
  Serious: Yes (Other)
  Sender: FDA-Public Use
  Company Number: None

PATIENT
  Sex: Female
  Weight: 65.77 kg

DRUGS (1)
  1. SERTRALINE HYDROCHLORIDE [Suspect]
     Indication: DEPRESSION
     Dosage: 100.0 MG
     Route: 048
     Dates: start: 20080205, end: 20121231

REACTIONS (5)
  - DIVORCED [None]
  - APATHY [None]
  - EMOTIONAL POVERTY [None]
  - DRUG INEFFECTIVE [None]
  - MARITAL PROBLEM [None]
